FAERS Safety Report 10471294 (Version 1)
Quarter: 2014Q3

REPORT INFORMATION
  Report Type: Report from Study
  Country: US (occurrence: US)
  Receive Date: 20140923
  Receipt Date: 20140923
  Transmission Date: 20150326
  Serious: No
  Sender: FDA-Public Use
  Company Number: US-ALEXION-A201002276

PATIENT
  Age: 40 Year
  Sex: Female

DRUGS (1)
  1. SOLIRIS [Suspect]
     Active Substance: ECULIZUMAB
     Indication: PAROXYSMAL NOCTURNAL HAEMOGLOBINURIA

REACTIONS (8)
  - Fatigue [Unknown]
  - Joint swelling [Unknown]
  - Pregnancy [Unknown]
  - Joint injury [Unknown]
  - Chromaturia [Not Recovered/Not Resolved]
  - Haemoglobinuria [Unknown]
  - Quality of life decreased [Unknown]
  - Chest pain [Unknown]

NARRATIVE: CASE EVENT DATE: 201006
